FAERS Safety Report 18869303 (Version 1)
Quarter: 2021Q1

REPORT INFORMATION
  Report Type: Report from Study
  Country: None (occurrence: US)
  Receive Date: 20210210
  Receipt Date: 20210210
  Transmission Date: 20210420
  Serious: Yes (Hospitalization)
  Sender: FDA-Public Use
  Company Number: US-ABBVIE-20K-163-3686875-00

PATIENT
  Age: 79 Year
  Sex: Female
  Weight: 50.85 kg

DRUGS (14)
  1. LEVOTHYROXINE. [Concomitant]
     Active Substance: LEVOTHYROXINE
     Indication: THYROID DISORDER
  2. VALACYCLOVIR [Concomitant]
     Active Substance: VALACYCLOVIR HYDROCHLORIDE
     Indication: ORAL HERPES
  3. HUMIRA [Suspect]
     Active Substance: ADALIMUMAB
     Indication: CROHN^S DISEASE
  4. BALSALAZIDE [Concomitant]
     Active Substance: BALSALAZIDE
     Indication: GASTRIC DISORDER
  5. HYDROCODON [Concomitant]
     Active Substance: HYDROCODONE
     Indication: BACK PAIN
     Dosage: 7.5
  6. BACLOFEN. [Concomitant]
     Active Substance: BACLOFEN
     Indication: MUSCLE RELAXANT THERAPY
  7. HUMIRA [Suspect]
     Active Substance: ADALIMUMAB
     Indication: COLITIS ULCERATIVE
     Route: 058
     Dates: start: 20200927
  8. HYDROCODON [Concomitant]
     Active Substance: HYDROCODONE
     Indication: ARTHRALGIA
  9. DIPHENOXYLATE [Concomitant]
     Active Substance: DIPHENOXYLATE
     Indication: DIARRHOEA
  10. ACETAMINOPHEN. [Concomitant]
     Active Substance: ACETAMINOPHEN
     Indication: BACK PAIN
     Dosage: 325
  11. ATROP [Concomitant]
     Indication: DIARRHOEA
  12. TRAZODONE [Concomitant]
     Active Substance: TRAZODONE HYDROCHLORIDE
     Indication: SLEEP DISORDER THERAPY
  13. ACETAMINOPHEN. [Concomitant]
     Active Substance: ACETAMINOPHEN
     Indication: ARTHRALGIA
  14. PANTOPRAZOLE [Concomitant]
     Active Substance: PANTOPRAZOLE
     Indication: GASTROOESOPHAGEAL REFLUX DISEASE

REACTIONS (1)
  - Haemorrhagic stroke [Recovered/Resolved]

NARRATIVE: CASE EVENT DATE: 20201005
